FAERS Safety Report 23519713 (Version 1)
Quarter: 2024Q1

REPORT INFORMATION
  Report Type: Report from Study
  Country: CO (occurrence: CO)
  Receive Date: 20240213
  Receipt Date: 20240213
  Transmission Date: 20240410
  Serious: Yes (Hospitalization, Other)
  Sender: FDA-Public Use
  Company Number: CO-ABBVIE-5636892

PATIENT
  Age: 47 Year
  Sex: Male
  Weight: 85 kg

DRUGS (1)
  1. SKYRIZI [Suspect]
     Active Substance: RISANKIZUMAB-RZAA
     Indication: Psoriasis
     Dosage: FORM STRENGTH: 150 MILLIGRAM
     Route: 058
     Dates: start: 20230203

REACTIONS (4)
  - Schizophrenia [Unknown]
  - Depression [Unknown]
  - Influenza [Recovered/Resolved]
  - Bedridden [Recovered/Resolved]

NARRATIVE: CASE EVENT DATE: 20231201
